FAERS Safety Report 25282773 (Version 1)
Quarter: 2025Q2

REPORT INFORMATION
  Report Type: Spontaneous
  Country: US (occurrence: None)
  Receive Date: 20250507
  Receipt Date: 20250507
  Transmission Date: 20250716
  Serious: Yes (Other)
  Sender: FDA-CTU
  Company Number: None

PATIENT
  Age: 85 Year
  Sex: Female

DRUGS (1)
  1. LENALIDOMIDE [Suspect]
     Active Substance: LENALIDOMIDE
     Indication: Plasma cell myeloma
     Dosage: FREQUENCY : DAILY;?
     Route: 048
     Dates: start: 20241021, end: 20250310

REACTIONS (6)
  - Nausea [None]
  - Dizziness [None]
  - Diarrhoea [None]
  - Somnolence [None]
  - Hangover [None]
  - Therapy interrupted [None]

NARRATIVE: CASE EVENT DATE: 20250310
